FAERS Safety Report 6681654-6 (Version None)
Quarter: 2010Q2

REPORT INFORMATION
  Report Type: 
  Country: None (occurrence: None)
  Receive Date: 20100414
  Receipt Date: 20100402
  Transmission Date: 20101027
  Serious: Yes (Hospitalization)
  Sender: FDA-Public Use
  Company Number: FR-ELI_LILLY_AND_COMPANY-FR201004001487

PATIENT
  Sex: Male
  Weight: 69 kg

DRUGS (7)
  1. PEMETREXED [Suspect]
     Indication: NON-SMALL CELL LUNG CANCER
     Dosage: 900 MG, EVERY 3 WEEKS
     Route: 042
     Dates: start: 20091106
  2. PEMETREXED [Suspect]
     Dosage: 675 MG, UNK
     Dates: start: 20100118
  3. FOLIC ACID [Concomitant]
     Indication: SUPPLEMENTATION THERAPY
  4. VITAMIN B-12 [Concomitant]
     Indication: SUPPLEMENTATION THERAPY
  5. DEXAMETHASONE [Concomitant]
     Indication: PROPHYLAXIS
  6. PARACETAMOL [Concomitant]
  7. NEXIUM [Concomitant]
     Dosage: 40 D/F, DAILY (1/D)
     Route: 042
     Dates: start: 20091226, end: 20091231

REACTIONS (2)
  - BONE MARROW FAILURE [None]
  - GASTROENTERITIS [None]
